FAERS Safety Report 10301721 (Version 2)
Quarter: 2014Q3

REPORT INFORMATION
  Report Type: Report from Study
  Country: US (occurrence: US)
  Receive Date: 20140714
  Receipt Date: 20140922
  Transmission Date: 20150326
  Serious: Yes (Hospitalization, Other)
  Sender: FDA-Public Use
  Company Number: US-ACTELION-A-NJ2014-101671

PATIENT
  Age: 56 Year
  Sex: Female

DRUGS (2)
  1. MACITENTAN [Suspect]
     Active Substance: MACITENTAN
     Indication: CONNECTIVE TISSUE DISORDER
     Dosage: 10 MG, UNK
     Route: 048
     Dates: start: 20140410
  2. TYVASO [Concomitant]
     Active Substance: TREPROSTINIL

REACTIONS (6)
  - Sepsis [Unknown]
  - Hypotension [Unknown]
  - Spinal compression fracture [Unknown]
  - Dyspnoea [Unknown]
  - Wrist fracture [Unknown]
  - Cardiac failure congestive [Unknown]

NARRATIVE: CASE EVENT DATE: 201407
